FAERS Safety Report 7803072-7 (Version None)
Quarter: 2011Q4

REPORT INFORMATION
  Report Type: 
  Country: None (occurrence: None)
  Receive Date: 20111007
  Receipt Date: 20110929
  Transmission Date: 20120403
  Serious: Yes (Hospitalization)
  Sender: FDA-Public Use
  Company Number: DE-PFIZER INC-2011233311

PATIENT
  Age: 72 Year
  Sex: Female
  Weight: 45 kg

DRUGS (6)
  1. ONDANSETRON [Suspect]
     Dosage: 8 (NO UNITS PROVIDED)
     Route: 042
     Dates: start: 20110901
  2. FLUOROURACIL [Suspect]
     Indication: COLORECTAL CANCER METASTATIC
     Dosage: 4488 MG, 2X/WEEK
     Route: 042
     Dates: start: 20110901, end: 20110915
  3. METOCLOPRAMIDE [Suspect]
     Dosage: 20 GTT, 3X/DAY
     Route: 048
  4. BEVACIZUMAB [Suspect]
     Indication: COLORECTAL CANCER METASTATIC
     Dosage: 225 MG, 2X/WEEK
     Route: 042
     Dates: start: 20110901
  5. IRINOTECAN HCL [Suspect]
     Indication: COLORECTAL CANCER METASTATIC
     Dosage: 252 MG, 2X/WEEK
     Route: 042
     Dates: start: 20110901
  6. LEUCOVORIN CALCIUM [Suspect]
     Indication: COLORECTAL CANCER METASTATIC
     Dosage: 1002 MG, 2X/WEEK
     Route: 042
     Dates: start: 20110901

REACTIONS (1)
  - WEIGHT DECREASED [None]
